FAERS Safety Report 5967003-7 (Version None)
Quarter: 2008Q4

REPORT INFORMATION
  Report Type: 
  Country: None (occurrence: None)
  Receive Date: 20081125
  Receipt Date: 20081112
  Transmission Date: 20090506
  Serious: Yes (Hospitalization)
  Sender: FDA-Public Use
  Company Number: JP-ELI_LILLY_AND_COMPANY-JP200811001439

PATIENT
  Age: 67 Year
  Sex: Female

DRUGS (5)
  1. EVISTA [Suspect]
     Indication: OSTEOPOROSIS
     Dosage: 60 MG, DAILY (1/D)
     Route: 048
     Dates: start: 20050101
  2. DOGMATYL [Concomitant]
     Dosage: UNK, UNK
     Route: 065
  3. ALYSE A [Concomitant]
     Dosage: UNK, UNK
     Route: 048
  4. YODEL [Concomitant]
     Dosage: UNK, UNK
  5. MYSLEE [Concomitant]
     Route: 048

REACTIONS (1)
  - HYPOGLYCAEMIA [None]
